FAERS Safety Report 7296653-3 (Version None)
Quarter: 2011Q1

REPORT INFORMATION
  Report Type: 
  Country: None (occurrence: None)
  Receive Date: 20110216
  Receipt Date: 20110211
  Transmission Date: 20110831
  Serious: Yes (Death)
  Sender: FDA-Public Use
  Company Number: PHHY2011NZ04296

PATIENT
  Sex: Female

DRUGS (6)
  1. CLOZARIL [Suspect]
     Indication: SCHIZOPHRENIA
     Dosage: UNK
     Dates: start: 20091013
  2. AMISULPRIDE [Concomitant]
     Indication: SCHIZOPHRENIA
     Dosage: 150 MG-300 MG
     Dates: start: 20100311
  3. AROPAX [Concomitant]
  4. CITALOPRAM [Concomitant]
     Indication: DEPRESSION
     Dosage: 20 MG, UNK
     Route: 048
     Dates: start: 20040224
  5. CITALOPRAM [Concomitant]
     Indication: ANXIETY
  6. CLOZARIL [Suspect]
     Dosage: 300 MG, UNK
     Dates: start: 19980902, end: 20100603

REACTIONS (3)
  - ANAEMIA [None]
  - WHITE BLOOD CELL COUNT INCREASED [None]
  - NON-HODGKIN'S LYMPHOMA STAGE III [None]
